FAERS Safety Report 22591848 (Version 3)
Quarter: 2023Q4

REPORT INFORMATION
  Report Type: Report from Study
  Country: US (occurrence: US)
  Receive Date: 20230612
  Receipt Date: 20231220
  Transmission Date: 20240110
  Serious: Yes (Hospitalization, Other)
  Sender: FDA-Public Use
  Company Number: US-ABBVIE-5283446

PATIENT
  Sex: Female

DRUGS (3)
  1. RINVOQ [Suspect]
     Active Substance: UPADACITINIB
     Indication: Psoriatic arthropathy
     Dosage: STRENGTH: 15MG?LAST ADMIN DATE: MAY 2023
     Route: 048
     Dates: start: 20230501
  2. RINVOQ [Suspect]
     Active Substance: UPADACITINIB
     Indication: Psoriatic arthropathy
     Dosage: LAST ADMIN DATE: 2023?FORM STRENGTH: 15 MILLIGRAMS
     Route: 048
     Dates: start: 202305
  3. RINVOQ [Suspect]
     Active Substance: UPADACITINIB
     Indication: Psoriatic arthropathy
     Dosage: FORM STRENGTH: 15 MILLIGRAMS
     Route: 048
     Dates: start: 20230524

REACTIONS (2)
  - Limb injury [Unknown]
  - Fall [Unknown]

NARRATIVE: CASE EVENT DATE: 20230101
